FAERS Safety Report 10873384 (Version 1)
Quarter: 2015Q1

REPORT INFORMATION
  Report Type: Spontaneous
  Country: US (occurrence: US)
  Receive Date: 20150227
  Receipt Date: 20150227
  Transmission Date: 20150721
  Serious: No
  Sender: FDA-Public Use
  Company Number: US-TEVA-479418USA

PATIENT
  Sex: Female

DRUGS (5)
  1. AMPHETAMINE W/DEXTROAMPHETAMINE [Suspect]
     Active Substance: AMPHETAMINE SULFATE\DEXTROAMPHETAMINE
     Indication: ASTHENIA
  2. AMPHETAMINE W/DEXTROAMPHETAMINE [Suspect]
     Active Substance: AMPHETAMINE SULFATE\DEXTROAMPHETAMINE
     Indication: BLOOD CORTISOL DECREASED
  3. AMPHETAMINE W/DEXTROAMPHETAMINE [Suspect]
     Active Substance: AMPHETAMINE SULFATE\DEXTROAMPHETAMINE
     Indication: AUTOIMMUNE THYROIDITIS
  4. AMPHETAMINE W/DEXTROAMPHETAMINE [Suspect]
     Active Substance: AMPHETAMINE SULFATE\DEXTROAMPHETAMINE
     Indication: FATIGUE
  5. AMPHETAMINE W/DEXTROAMPHETAMINE [Suspect]
     Active Substance: AMPHETAMINE SULFATE\DEXTROAMPHETAMINE
     Indication: IMMUNE SYSTEM DISORDER

REACTIONS (8)
  - Irritability [Unknown]
  - Dry mouth [Unknown]
  - Heart rate increased [Unknown]
  - Product colour issue [Unknown]
  - Agitation [Unknown]
  - Disturbance in attention [Unknown]
  - Drug ineffective [Unknown]
  - Anger [Unknown]
